FAERS Safety Report 20514341 (Version 1)
Quarter: 2022Q1

REPORT INFORMATION
  Report Type: Spontaneous
  Country: US (occurrence: US)
  Receive Date: 20220224
  Receipt Date: 20220224
  Transmission Date: 20220423
  Serious: No
  Sender: FDA-Public Use
  Company Number: US-VYERA PHARMACEUTICALS, LLC-2021VYE00006

PATIENT
  Sex: Male
  Weight: 65.76 kg

DRUGS (6)
  1. DARAPRIM [Suspect]
     Active Substance: PYRIMETHAMINE
     Indication: Cerebral toxoplasmosis
     Dosage: 200 MG, ONCE (LOADING DOSE)
     Route: 048
     Dates: start: 20210415, end: 20210415
  2. DARAPRIM [Suspect]
     Active Substance: PYRIMETHAMINE
     Indication: HIV infection
     Dosage: 75 MG, 1X/DAY
     Route: 048
     Dates: start: 20210416, end: 20210517
  3. LEUCOVORIN [Suspect]
     Active Substance: LEUCOVORIN
  4. SULFADIAZINE [Suspect]
     Active Substance: SULFADIAZINE
  5. GENVOYA [Concomitant]
     Active Substance: COBICISTAT\ELVITEGRAVIR\EMTRICITABINE\TENOFOVIR ALAFENAMIDE FUMARATE
  6. BIKTARVY [Concomitant]
     Active Substance: BICTEGRAVIR SODIUM\EMTRICITABINE\TENOFOVIR ALAFENAMIDE FUMARATE

REACTIONS (6)
  - Night sweats [Recovered/Resolved]
  - Insomnia [Recovered/Resolved]
  - Dizziness [Recovering/Resolving]
  - Nausea [Recovered/Resolved]
  - Weight decreased [Unknown]
  - Vomiting [Recovered/Resolved]

NARRATIVE: CASE EVENT DATE: 20210101
